FAERS Safety Report 4492764-6 (Version None)
Quarter: 2004Q4

REPORT INFORMATION
  Report Type: 
  Country: None (occurrence: None)
  Receive Date: 20041029
  Receipt Date: 20041014
  Transmission Date: 20050328
  Serious: Yes (Hospitalization, Other)
  Sender: FDA-Public Use
  Company Number: 2004S1003078

PATIENT
  Age: 70 Year
  Sex: Female

DRUGS (3)
  1. APOKYN [Suspect]
     Indication: PARKINSON'S DISEASE
     Dosage: 0.2ML - 0.4ML QID PM, SUBCUTANEOUSLY
     Route: 058
     Dates: end: 20040901
  2. REQUIP [Suspect]
     Indication: PARKINSON'S DISEASE
     Dosage: 5MG, QID, ORAL
     Route: 048
     Dates: start: 20040601
  3. SEROQUEL [Suspect]
     Dosage: 25MG, BID, ORAL
     Route: 048
     Dates: start: 20040901

REACTIONS (2)
  - BLOOD PRESSURE ABNORMAL [None]
  - BLOOD PRESSURE SYSTOLIC DECREASED [None]
